FAERS Safety Report 4485375-X (Version None)
Quarter: 2004Q4

REPORT INFORMATION
  Report Type: 
  Country: None (occurrence: None)
  Receive Date: 20041025
  Receipt Date: 20041025
  Transmission Date: 20050328
  Serious: Yes (Other)
  Sender: FDA-Public Use
  Company Number: None

PATIENT
  Age: 84 Year
  Sex: Female

DRUGS (1)
  1. AZATHIOPRINE [Suspect]
     Indication: RHEUMATOID ARTHRITIS
     Dosage: 1.5 TABLET   DAILY   ORAL
     Route: 048

REACTIONS (5)
  - CHILLS [None]
  - CONTUSION [None]
  - FALL [None]
  - INCOHERENT [None]
  - PYREXIA [None]
